FAERS Safety Report 9598901 (Version 1)
Quarter: 2013Q4

REPORT INFORMATION
  Report Type: Spontaneous
  Country: US (occurrence: US)
  Receive Date: 20131004
  Receipt Date: 20131004
  Transmission Date: 20140711
  Serious: No
  Sender: FDA-Public Use
  Company Number: US-AMGEN-USASP2013026602

PATIENT
  Age: 41 Year
  Sex: Male
  Weight: 136.5 kg

DRUGS (2)
  1. ENBREL [Suspect]
     Indication: PRODUCT USED FOR UNKNOWN INDICATION
     Dosage: 50 MG, 2 TIMES/WK, 72 TO 96 HOURS APART FOR THREE MONTHS THEN 50 MG SUBCUTANEOUSLY WEEKLY THEREAFTER
     Route: 058
  2. LIPITOR [Concomitant]
     Dosage: 10 MG, UNK

REACTIONS (1)
  - Sinusitis [Unknown]
